FAERS Safety Report 11311733 (Version 1)
Quarter: 2015Q3

REPORT INFORMATION
  Report Type: Spontaneous
  Country: US (occurrence: None)
  Receive Date: 20150724
  Receipt Date: 20150724
  Transmission Date: 20151125
  Serious: No
  Sender: FDA-Public Use
  Company Number: None

PATIENT
  Age: 90 Year
  Sex: Female

DRUGS (3)
  1. VANCOMYCIN [Suspect]
     Active Substance: VANCOMYCIN
     Indication: SEPTIC SHOCK
     Route: 042
     Dates: start: 20150407, end: 20150407
  2. DIATRIZOATE [Concomitant]
     Active Substance: DIATRIZOATE MEGLUMINE
  3. PIPERACILLIN AND TAZOBACTAM [Suspect]
     Active Substance: PIPERACILLIN SODIUM\TAZOBACTAM SODIUM
     Route: 042

REACTIONS (5)
  - Dyspnoea [None]
  - Hypertension [None]
  - Chills [None]
  - Tachycardia [None]
  - Erythema [None]

NARRATIVE: CASE EVENT DATE: 20150407
